FAERS Safety Report 10404530 (Version 1)
Quarter: 2014Q2

REPORT INFORMATION
  Report Type: Spontaneous
  Country: US (occurrence: None)
  Receive Date: 20140514
  Receipt Date: 20140514
  Transmission Date: 20141212
  Serious: Yes (Other)
  Sender: FDA-Public Use
  Company Number: 091375

PATIENT
  Age: 50 Year
  Sex: Female

DRUGS (3)
  1. CIMZIA [Suspect]
     Indication: CROHN^S DISEASE
     Dosage: (400MG 1X/28 DAYS)
     Dates: start: 201212, end: 20130614
  2. PREDNISONE [Suspect]
     Dosage: (40MG QD, TITRATED DOWN)
  3. ASPIRIN [Concomitant]

REACTIONS (3)
  - Myocardial infarction [None]
  - Drug ineffective [None]
  - Fatigue [None]
